FAERS Safety Report 15701384 (Version 2)
Quarter: 2018Q4

REPORT INFORMATION
  Report Type: Spontaneous
  Country: FR (occurrence: FR)
  Receive Date: 20181207
  Receipt Date: 20181211
  Transmission Date: 20190205
  Serious: Yes (Hospitalization, Other)
  Sender: FDA-Public Use
  Company Number: FR-TEVA-2018-FR-983669

PATIENT
  Age: 37 Year
  Sex: Female
  Weight: 58 kg

DRUGS (2)
  1. ANDROCUR 50 MG, COMPRIM? [Suspect]
     Active Substance: CYPROTERONE ACETATE
     Indication: HIRSUTISM
     Dosage: 25 MILLIGRAM DAILY;
     Route: 048
     Dates: start: 20060102, end: 20180917
  2. ESTREVA (ESTRADIOL THERAMEX) [Suspect]
     Active Substance: ESTRADIOL
     Indication: CONTRACEPTION
     Dosage: 1 DOSAGE FORMS DAILY;
     Route: 048
     Dates: start: 20060102, end: 20180917

REACTIONS (3)
  - Anosmia [Not Recovered/Not Resolved]
  - Headache [Not Recovered/Not Resolved]
  - Meningioma [Not Recovered/Not Resolved]

NARRATIVE: CASE EVENT DATE: 201808
